FAERS Safety Report 5469908-2 (Version None)
Quarter: 2007Q3

REPORT INFORMATION
  Report Type: 
  Country: None (occurrence: None)
  Receive Date: 20070927
  Receipt Date: 20070921
  Transmission Date: 20080115
  Serious: Yes (Hospitalization)
  Sender: FDA-Public Use
  Company Number: HQWYE275424SEP07

PATIENT
  Age: 83 Year
  Sex: Female

DRUGS (10)
  1. CORDARONE [Suspect]
     Indication: SUPRAVENTRICULAR TACHYCARDIA
     Route: 048
     Dates: start: 20070728, end: 20070731
  2. CORDARONE [Interacting]
     Indication: ATRIAL FIBRILLATION
  3. AUGMENTIN '125' [Interacting]
     Dosage: DOSE AND FREQUENCY NOT SPECIFIED
     Route: 042
     Dates: start: 20070731
  4. LASIX [Concomitant]
     Dosage: 20MG/ML, FREQUENCY NOT SPECIFIED
     Route: 042
  5. DIGOXIN [Concomitant]
     Dosage: 0.125 MG, FREQUENCY NOT SPECIFIED
     Route: 048
     Dates: start: 20070731
  6. INEXIUM [Concomitant]
     Dosage: 20 MG, FREQUENCY NOT SPECIFIED
     Route: 048
  7. STAGID [Concomitant]
     Dosage: 700 MG, FREQUENCY NOT SPECIFIED
     Route: 048
  8. PREVISCAN [Interacting]
     Indication: MYOCARDIAL ISCHAEMIA
     Route: 048
  9. PREVISCAN [Interacting]
     Route: 048
     Dates: start: 20070727, end: 20070803
  10. ACTISKENAN [Concomitant]
     Dosage: 5 MG, FREQUENCY NOT SPECIFIED
     Route: 048
     Dates: start: 20070725

REACTIONS (3)
  - DRUG INTERACTION [None]
  - GASTRIC ULCER HAEMORRHAGE [None]
  - INTERNATIONAL NORMALISED RATIO INCREASED [None]
